FAERS Safety Report 7388176-8 (Version None)
Quarter: 2011Q1

REPORT INFORMATION
  Report Type: 
  Country: None (occurrence: None)
  Receive Date: 20110324
  Receipt Date: 20110309
  Transmission Date: 20110831
  Serious: Yes (Hospitalization)
  Sender: FDA-Public Use
  Company Number: AUR-APL-2011-00948

PATIENT
  Age: 87 Year
  Sex: Male
  Weight: 80 kg

DRUGS (6)
  1. FLOXACILLIN SODIUM [Suspect]
     Indication: ARTHRITIS BACTERIAL
     Dosage: 2G-QID-INTRAVENOUS
     Route: 042
  2. OMEPRAZOLE [Concomitant]
  3. FLUOXETINE HYDROCHLORIDE [Suspect]
     Indication: DEPRESSION
     Dosage: 20MG-DAILY-ORAL
     Route: 048
     Dates: start: 20110122, end: 20110124
  4. FLOXACILLIN SODIUM [Suspect]
     Indication: ARTHRITIS BACTERIAL
     Dosage: 1G-QID-ORAL
     Route: 048
     Dates: start: 20101227, end: 20110107
  5. ASPIRIN [Concomitant]
  6. LAXIDO [Concomitant]

REACTIONS (2)
  - HEPATOTOXICITY [None]
  - HEPATITIS [None]
